FAERS Safety Report 8601898-3 (Version None)
Quarter: 2012Q3

REPORT INFORMATION
  Report Type: 
  Country: None (occurrence: None)
  Receive Date: 20120817
  Receipt Date: 20120809
  Transmission Date: 20120928
  Serious: Yes (Hospitalization, Other)
  Sender: FDA-Public Use
  Company Number: JP-B.I. PHARMACEUTICALS,INC./RIDGEFIELD-2012-BP-13217NB

PATIENT
  Sex: Female
  Weight: 62 kg

DRUGS (8)
  1. ONEALFA [Concomitant]
     Dosage: 1 MCG
     Route: 048
     Dates: start: 20120321
  2. ARICEPT ODT [Concomitant]
     Indication: DEMENTIA ALZHEIMER'S TYPE
     Dosage: 5 MG
     Route: 048
     Dates: start: 20070420
  3. NEOMALLERMIN TR [Concomitant]
     Indication: PHARYNGITIS
     Dosage: 12 MG
     Route: 048
     Dates: start: 20120210, end: 20120215
  4. DILTIAZEM HCL [Concomitant]
     Indication: ATRIAL FIBRILLATION
     Dosage: 100 MG
     Route: 048
     Dates: start: 20120502
  5. CLARITHROMYCIN [Concomitant]
     Indication: PHARYNGITIS
     Dosage: 400 MG
     Route: 048
     Dates: start: 20120210, end: 20120215
  6. PRADAXA [Suspect]
     Indication: ANTICOAGULANT THERAPY
     Dosage: 150 MG
     Route: 048
     Dates: start: 20120201, end: 20120301
  7. PRADAXA [Suspect]
     Dosage: 220 MG
     Route: 048
     Dates: start: 20120401, end: 20120510
  8. ACTONEL [Concomitant]
     Indication: OSTEOPOROSIS
     Dosage: 2.5 MG
     Route: 048
     Dates: start: 20070420, end: 20120320

REACTIONS (8)
  - NEOPLASM MALIGNANT [None]
  - DIARRHOEA [None]
  - GASTROINTESTINAL HAEMORRHAGE [None]
  - VOMITING [None]
  - HYPOKALAEMIA [None]
  - ANAEMIA [None]
  - OCCULT BLOOD POSITIVE [None]
  - CONSTIPATION [None]
